FAERS Safety Report 21770965 (Version 1)
Quarter: 2022Q4

REPORT INFORMATION
  Report Type: Spontaneous
  Country: US (occurrence: None)
  Receive Date: 20221222
  Receipt Date: 20221222
  Transmission Date: 20230113
  Serious: No
  Sender: FDA-Public Use
  Company Number: None

PATIENT
  Age: 51 Year
  Sex: Female
  Weight: 64.82 kg

DRUGS (10)
  1. PROMACTA [Suspect]
     Active Substance: ELTROMBOPAG OLAMINE
     Indication: Plasma cell myeloma
     Dosage: 50MG DAILY ORAL
     Route: 048
  2. ACETAMINOPHEN [Concomitant]
     Active Substance: ACETAMINOPHEN
  3. ACYCLOVIR [Concomitant]
     Active Substance: ACYCLOVIR
  4. DESFERAL [Concomitant]
     Active Substance: DEFEROXAMINE MESYLATE
  5. GARLIC [Concomitant]
     Active Substance: GARLIC
  6. GARLIC [Concomitant]
     Active Substance: GARLIC
  7. PYRIDOXINE [Concomitant]
     Active Substance: PYRIDOXINE
  8. HERBALS\TURMERIC [Concomitant]
     Active Substance: HERBALS\TURMERIC
  9. valacyclovir HCI [Concomitant]
  10. VITAMIN D [Concomitant]
     Active Substance: VITAMIN D NOS

REACTIONS (1)
  - Urinary tract infection [None]
